FAERS Safety Report 24903091 (Version 1)
Quarter: 2025Q1

REPORT INFORMATION
  Report Type: Spontaneous
  Country: US (occurrence: US)
  Receive Date: 20250130
  Receipt Date: 20250130
  Transmission Date: 20250409
  Serious: No
  Sender: TAKEDA
  Company Number: US-TAKEDA-2025TUS007836

PATIENT
  Sex: Female

DRUGS (1)
  1. PENTASA [Suspect]
     Active Substance: MESALAMINE
     Indication: Product used for unknown indication
     Dosage: 500 MILLIGRAM, TID

REACTIONS (4)
  - Product availability issue [Unknown]
  - Inability to afford medication [Unknown]
  - Insurance issue [Unknown]
  - Visual impairment [Unknown]
